FAERS Safety Report 25178604 (Version 1)
Quarter: 2025Q2

REPORT INFORMATION
  Report Type: Report from Study
  Country: CA (occurrence: CA)
  Receive Date: 20250409
  Receipt Date: 20250409
  Transmission Date: 20250716
  Serious: Yes (Other)
  Sender: SAMSUNG BIOEPIS
  Company Number: CA-SAMSUNG BIOEPIS-SB-2025-11956

PATIENT
  Age: 53 Year
  Sex: Male

DRUGS (1)
  1. RENFLEXIS [Suspect]
     Active Substance: INFLIXIMAB-ABDA
     Indication: Ankylosing spondylitis
     Dates: start: 20190909

REACTIONS (10)
  - Fall [Recovered/Resolved]
  - Pyrexia [Recovered/Resolved]
  - Loss of consciousness [Unknown]
  - Head injury [Unknown]
  - Malnutrition [Unknown]
  - Hypotension [Unknown]
  - Malaise [Unknown]
  - Hypoaesthesia [Unknown]
  - Nerve injury [Unknown]
  - Wound [Recovered/Resolved]

NARRATIVE: CASE EVENT DATE: 20250214
